FAERS Safety Report 7875338-6 (Version None)
Quarter: 2011Q4

REPORT INFORMATION
  Report Type: 
  Country: None (occurrence: None)
  Receive Date: 20111031
  Receipt Date: 20101108
  Transmission Date: 20120403
  Serious: Yes (Hospitalization)
  Sender: FDA-Public Use
  Company Number: US-GLAXOSMITHKLINE-A0891848A

PATIENT
  Age: 55 Year
  Sex: Female
  Weight: 109.1 kg

DRUGS (8)
  1. AVANDIA [Suspect]
     Indication: TYPE 2 DIABETES MELLITUS
     Dosage: 4MG TWICE PER DAY
     Route: 048
     Dates: start: 20040101, end: 20080101
  2. LOVASTATIN [Concomitant]
  3. LISINOPRIL [Concomitant]
  4. GLIPIZIDE [Concomitant]
  5. NORVASC [Concomitant]
  6. FLUTICASONE PROPIONATE [Concomitant]
  7. PREMARIN [Concomitant]
  8. HYDROCHLOROTHIAZIDE [Concomitant]

REACTIONS (2)
  - CARDIOVASCULAR DISORDER [None]
  - ANGINA PECTORIS [None]
